FAERS Safety Report 6230791-9 (Version None)
Quarter: 2009Q2

REPORT INFORMATION
  Report Type: 
  Country: None (occurrence: None)
  Receive Date: 20090611
  Receipt Date: 20090526
  Transmission Date: 20091009
  Serious: Yes (Hospitalization, Disabling)
  Sender: FDA-Public Use
  Company Number: 2009S1009132

PATIENT
  Age: 35 Year
  Sex: Male

DRUGS (2)
  1. ZOLPIDEM [Suspect]
     Indication: DRUG ABUSE
     Dosage: INTRA-ARTERIAL
  2. METHADONE HCL [Concomitant]

REACTIONS (12)
  - ARTERIAL THROMBOSIS LIMB [None]
  - BLISTER [None]
  - CYANOSIS [None]
  - FINGER AMPUTATION [None]
  - INCORRECT ROUTE OF DRUG ADMINISTRATION [None]
  - INFLAMMATION [None]
  - INTENTIONAL DRUG MISUSE [None]
  - NECROSIS [None]
  - PAIN IN EXTREMITY [None]
  - PERIPHERAL ISCHAEMIA [None]
  - TREATMENT NONCOMPLIANCE [None]
  - WRONG TECHNIQUE IN DRUG USAGE PROCESS [None]
